FAERS Safety Report 7309270-3 (Version None)
Quarter: 2011Q1

REPORT INFORMATION
  Report Type: 
  Country: None (occurrence: None)
  Receive Date: 20110223
  Receipt Date: 20110222
  Transmission Date: 20110831
  Serious: Yes (Hospitalization, Other)
  Sender: FDA-Public Use
  Company Number: US-PFIZER INC-2011032853

PATIENT
  Sex: Female
  Weight: 64.853 kg

DRUGS (2)
  1. SOLU-MEDROL [Suspect]
     Indication: MULTIPLE SCLEROSIS
     Dosage: UNK
     Route: 042
     Dates: start: 20110204, end: 20110210
  2. GABAPENTIN [Suspect]
     Indication: MULTIPLE SCLEROSIS
     Dosage: 300 MG, UNK
     Route: 048
     Dates: start: 20110204, end: 20110210

REACTIONS (11)
  - ABDOMINAL PAIN [None]
  - MALAISE [None]
  - PAIN [None]
  - TONGUE PARALYSIS [None]
  - HYPOAESTHESIA [None]
  - FEELING ABNORMAL [None]
  - GASTRITIS [None]
  - PAIN IN EXTREMITY [None]
  - BURNING SENSATION [None]
  - POOR PERIPHERAL CIRCULATION [None]
  - FLUID RETENTION [None]
